FAERS Safety Report 11502650 (Version 1)
Quarter: 2015Q3

REPORT INFORMATION
  Report Type: Spontaneous
  Country: US (occurrence: US)
  Receive Date: 20150914
  Receipt Date: 20150914
  Transmission Date: 20151125
  Serious: No
  Sender: FDA-Public Use
  Company Number: US-ASTELLAS-2015US028174

PATIENT
  Age: 76 Year
  Sex: Male

DRUGS (4)
  1. SMZ-TMP [Concomitant]
     Active Substance: SULFAMETHOXAZOLE\TRIMETHOPRIM
     Indication: PRODUCT USED FOR UNKNOWN INDICATION
     Dosage: UNK UNK, UNKNOWN FREQ.
     Route: 065
  2. LYRICA [Concomitant]
     Active Substance: PREGABALIN
     Indication: PRODUCT USED FOR UNKNOWN INDICATION
     Dosage: UNK UNK, UNKNOWN FREQ.
     Route: 065
  3. XTANDI [Suspect]
     Active Substance: ENZALUTAMIDE
     Route: 048
  4. XTANDI [Suspect]
     Active Substance: ENZALUTAMIDE
     Indication: PROSTATE CANCER
     Dosage: 160 MG, ONCE DAILY, 40 MG X 4 CAPSULES
     Route: 048
     Dates: start: 20150619, end: 201507

REACTIONS (5)
  - Drug dose omission [Unknown]
  - Fatigue [Unknown]
  - Urinary tract infection [Unknown]
  - Diarrhoea [Unknown]
  - Pruritus [Unknown]

NARRATIVE: CASE EVENT DATE: 201507
